FAERS Safety Report 9882951 (Version 2)
Quarter: 2014Q1

REPORT INFORMATION
  Report Type: Report from Study
  Country: CH (occurrence: CH)
  Receive Date: 20140208
  Receipt Date: 20140208
  Transmission Date: 20141002
  Serious: Yes (Hospitalization)
  Sender: FDA-Public Use
  Company Number: CH-AMGEN-CHENI2013068623

PATIENT
  Age: 63 Year
  Sex: Female
  Weight: 53 kg

DRUGS (3)
  1. PANITUMUMAB [Suspect]
     Indication: COLORECTAL CANCER METASTATIC
     Dosage: 260 MG, UNK
     Route: 042
     Dates: start: 20130826
  2. MITOMYCIN [Concomitant]
     Dosage: 15 MG, UNK
     Route: 042
     Dates: start: 20130826
  3. XELODA [Concomitant]
     Dosage: 1000 MG, UNK
     Route: 048
     Dates: start: 20130826, end: 20130925

REACTIONS (2)
  - Diarrhoea [Recovered/Resolved]
  - Anal haemorrhage [Recovered/Resolved]
